FAERS Safety Report 22788273 (Version 2)
Quarter: 2024Q4

REPORT INFORMATION
  Report Type: Spontaneous
  Country: US (occurrence: US)
  Receive Date: 20230804
  Receipt Date: 20241125
  Transmission Date: 20250115
  Serious: No
  Sender: SANOFI AVENTIS
  Company Number: US-SA-SAC20230802000038

PATIENT
  Sex: Female

DRUGS (1)
  1. DUPIXENT [Suspect]
     Active Substance: DUPILUMAB
     Indication: Dermatitis atopic
     Dosage: 300 MG, QOW
     Route: 058
     Dates: start: 202108

REACTIONS (4)
  - Eczema [Unknown]
  - Skin fissures [Unknown]
  - Blister [Unknown]
  - Eczema [Unknown]

NARRATIVE: CASE EVENT DATE: 20241001
